FAERS Safety Report 6387805-5 (Version None)
Quarter: 2009Q3

REPORT INFORMATION
  Report Type: 
  Country: None (occurrence: None)
  Receive Date: 20090930
  Receipt Date: 20090915
  Transmission Date: 20100115
  Serious: Yes (Death, Other)
  Sender: FDA-Public Use
  Company Number: ALK_00966_2009

PATIENT
  Age: 57 Year
  Sex: Male

DRUGS (13)
  1. VIVITROL [Suspect]
     Indication: ALCOHOLISM
     Dosage: INTRAMUSCULAR
     Route: 030
     Dates: start: 20090807, end: 20090807
  2. VITAMINS NOS [Concomitant]
  3. TESTIM [Concomitant]
  4. TRAMADOL HCL [Concomitant]
  5. VERAPAMIL [Concomitant]
  6. CIALIS [Concomitant]
  7. MICARDIS HCT [Concomitant]
  8. METFORMIN HYDROCHLORIDE [Concomitant]
  9. PLAVIX [Concomitant]
  10. TYLENOL (CAPLET) [Concomitant]
  11. NEURONTIN [Concomitant]
  12. CYMBALTA [Concomitant]
  13. TRENTAL [Concomitant]

REACTIONS (5)
  - ALCOHOL WITHDRAWAL SYNDROME [None]
  - CONVULSION [None]
  - DRUG LEVEL INCREASED [None]
  - INCORRECT DOSE ADMINISTERED [None]
  - WRONG TECHNIQUE IN DRUG USAGE PROCESS [None]
